FAERS Safety Report 7418173-5 (Version None)
Quarter: 2011Q2

REPORT INFORMATION
  Report Type: 
  Country: None (occurrence: None)
  Receive Date: 20110415
  Receipt Date: 20110401
  Transmission Date: 20111010
  Serious: Yes (Death, Disabling)
  Sender: FDA-Public Use
  Company Number: US-CELGENEUS-163-21880-11021085

PATIENT
  Sex: Male

DRUGS (3)
  1. LIPITOR [Concomitant]
     Dosage: 5 MILLIGRAM
     Route: 048
     Dates: start: 20080219
  2. REVLIMID [Suspect]
     Indication: MULTIPLE MYELOMA
     Dosage: 25 MILLIGRAM
     Route: 048
     Dates: start: 20090101
  3. REVLIMID [Suspect]
     Dosage: 15 MILLIGRAM
     Route: 048
     Dates: start: 20090201, end: 20110112

REACTIONS (2)
  - DEMENTIA [None]
  - DEATH [None]
